FAERS Safety Report 5197537-7 (Version None)
Quarter: 2006Q4

REPORT INFORMATION
  Report Type: 
  Country: None (occurrence: None)
  Receive Date: 20060926
  Receipt Date: 20060720
  Transmission Date: 20070319
  Serious: No
  Sender: FDA-Public Use
  Company Number: SP00814

PATIENT
  Age: 11 Year
  Sex: Female
  Weight: 34.4734 kg

DRUGS (5)
  1. XIFAXAN [Suspect]
     Indication: CROHN'S DISEASE
     Dosage: 400 MG, BID (TWICE DAILY); ORAL
     Route: 048
     Dates: start: 20060316
  2. AZATHIOPRINE [Concomitant]
  3. PREVACID (TABLETS) [Concomitant]
  4. ENTOCORT [Concomitant]
  5. ASACOL [Concomitant]

REACTIONS (1)
  - FISTULA [None]
